FAERS Safety Report 16830676 (Version 1)
Quarter: 2019Q3

REPORT INFORMATION
  Report Type: Spontaneous
  Country: GB (occurrence: GB)
  Receive Date: 20190920
  Receipt Date: 20190920
  Transmission Date: 20191005
  Serious: Yes (Disabling)
  Sender: FDA-Public Use
  Company Number: GB-009507513-1909GBR006442

PATIENT
  Age: 65 Year
  Sex: Male

DRUGS (7)
  1. ASPIRIN. [Concomitant]
     Active Substance: ASPIRIN
     Dosage: 75 MILLIGRAM, QD
  2. NICORANDIL [Concomitant]
     Active Substance: NICORANDIL
     Dosage: 40 MILLIGRAM, QD
  3. HUMALOG MIX50/50 [Concomitant]
     Active Substance: INSULIN LISPRO
  4. PERINDOPRIL TERT-BUTYLAMINE RATIOPHARM [Concomitant]
  5. METFORMIN HYDROCHLORIDE. [Concomitant]
     Active Substance: METFORMIN HYDROCHLORIDE
  6. SIMVASTATIN. [Suspect]
     Active Substance: SIMVASTATIN
     Indication: CORONARY ARTERY DISEASE
     Dosage: 40 MILLIGRAM
     Route: 048
     Dates: start: 19980601, end: 20190505
  7. DILTIAZEM. [Concomitant]
     Active Substance: DILTIAZEM
     Dosage: 120 MILLIGRAM, QD

REACTIONS (2)
  - Interstitial lung disease [Not Recovered/Not Resolved]
  - Cough [Unknown]

NARRATIVE: CASE EVENT DATE: 201506
